FAERS Safety Report 18929006 (Version 1)
Quarter: 2021Q1

REPORT INFORMATION
  Report Type: Spontaneous
  Country: VE (occurrence: VE)
  Receive Date: 20210223
  Receipt Date: 20210223
  Transmission Date: 20210420
  Serious: Yes (Hospitalization, Other)
  Sender: FDA-Public Use
  Company Number: NVSC2020VE342801

PATIENT
  Sex: Male

DRUGS (1)
  1. GLIVEC [Suspect]
     Active Substance: IMATINIB MESYLATE
     Indication: CHRONIC MYELOID LEUKAEMIA
     Dosage: 400 MG (4 OF 100 MG)
     Route: 065

REACTIONS (8)
  - General physical health deterioration [Unknown]
  - Blood uric acid increased [Unknown]
  - Visual impairment [Unknown]
  - Hypertensive cardiomyopathy [Unknown]
  - Weight decreased [Unknown]
  - Asphyxia [Unknown]
  - Infection [Unknown]
  - Aortic aneurysm [Unknown]
